FAERS Safety Report 6336838-3 (Version None)
Quarter: 2009Q3

REPORT INFORMATION
  Report Type: 
  Country: None (occurrence: None)
  Receive Date: 20090828
  Receipt Date: 20090828
  Transmission Date: 20100115
  Serious: No
  Sender: FDA-Public Use
  Company Number: None

PATIENT
  Age: 40 Year
  Sex: Female
  Weight: 142.8831 kg

DRUGS (1)
  1. JANUVIA [Suspect]
     Indication: GLUCOSE TOLERANCE IMPAIRED
     Dosage: ONCE DAILY ONCE DAILY PO
     Route: 048
     Dates: start: 20080501, end: 20090401

REACTIONS (3)
  - DERMATITIS [None]
  - IMPAIRED HEALING [None]
  - ULCER [None]
